FAERS Safety Report 24930285 (Version 2)
Quarter: 2025Q1

REPORT INFORMATION
  Report Type: Spontaneous
  Country: US (occurrence: US)
  Receive Date: 20250205
  Receipt Date: 20250214
  Transmission Date: 20250408
  Serious: No
  Sender: PFIZER
  Company Number: US-PFIZER INC-202500023338

PATIENT

DRUGS (1)
  1. ETRASIMOD [Suspect]
     Active Substance: ETRASIMOD

REACTIONS (1)
  - Arthralgia [Recovered/Resolved]
